FAERS Safety Report 19031832 (Version 3)
Quarter: 2021Q2

REPORT INFORMATION
  Report Type: Spontaneous
  Country: US (occurrence: US)
  Receive Date: 20210319
  Receipt Date: 20210510
  Transmission Date: 20210717
  Serious: No
  Sender: FDA-Public Use
  Company Number: US-PFIZER INC-2021267527

PATIENT
  Age: 74 Year
  Sex: Female

DRUGS (6)
  1. NEURONTIN [Concomitant]
     Active Substance: GABAPENTIN
     Dosage: 100 MG, 2X/DAY [2 TIMES A DAY IN MORNING AND IN NIGHT]
  2. DEXILANT [Concomitant]
     Active Substance: DEXLANSOPRAZOLE
     Dosage: 60 MG, 1X/DAY [ONE TIME IN A MORNING]
  3. ACCUPRIL [Concomitant]
     Active Substance: QUINAPRIL HYDROCHLORIDE
     Dosage: 20 MG, 1X/DAY [ONE TIME IN MORNING]
  4. PREMARIN [Suspect]
     Active Substance: ESTROGENS, CONJUGATED
     Dosage: 0.45 MG, 1X/DAY [ONE TIMES AT NIGHT]
  5. AMLODIPINE BESILATE [Concomitant]
     Active Substance: AMLODIPINE BESYLATE
     Dosage: 100 MG, 1X/DAY [ONE TIME AT NIGHT]
  6. CELECOXIB. [Concomitant]
     Active Substance: CELECOXIB
     Dosage: 100 MG

REACTIONS (4)
  - Bradykinesia [Unknown]
  - Dysstasia [Unknown]
  - Complication associated with device [Unknown]
  - Vomiting [Unknown]
